FAERS Safety Report 17502954 (Version 1)
Quarter: 2020Q1

REPORT INFORMATION
  Report Type: Spontaneous
  Country: US (occurrence: US)
  Receive Date: 20200305
  Receipt Date: 20200305
  Transmission Date: 20200409
  Serious: No
  Sender: FDA-Public Use
  Company Number: None

PATIENT
  Age: 81 Year
  Sex: Female
  Weight: 76.75 kg

DRUGS (16)
  1. DEXAMETHASONE 4MG [Concomitant]
     Active Substance: DEXAMETHASONE
  2. PROCHLORPERAZINE 10MG [Concomitant]
  3. CALTRATE [Concomitant]
     Active Substance: CALCIUM CARBONATE
  4. CETIRIZINE [Concomitant]
     Active Substance: CETIRIZINE HYDROCHLORIDE
  5. ZOMTA IV 4MG/5ML [Concomitant]
  6. DARZALEX 100MG/5ML IV [Concomitant]
  7. FAMOTIDINE IV 20MG/2ML [Concomitant]
  8. MG CITRATE 100MG [Concomitant]
  9. MONTELUKAST [Concomitant]
     Active Substance: MONTELUKAST SODIUM
  10. XPOVIO [Suspect]
     Active Substance: SELINEXOR
     Dosage: ?          OTHER FREQUENCY:Q WEEKLY;?
     Route: 048
     Dates: start: 20200205
  11. VITAMIN D 1,000 U [Concomitant]
  12. APAP 325MG [Concomitant]
  13. CARVEDILOL 3.125MG [Concomitant]
     Active Substance: CARVEDILOL
  14. METHYLPREDNISONE IJ 125MG [Concomitant]
  15. PRESERVISION AREDS [Concomitant]
     Active Substance: MINERALS\VITAMINS
  16. CYMBALTA [Concomitant]
     Active Substance: DULOXETINE HYDROCHLORIDE

REACTIONS (2)
  - Adverse drug reaction [None]
  - Therapy cessation [None]

NARRATIVE: CASE EVENT DATE: 20200305
